FAERS Safety Report 6005416-8 (Version None)
Quarter: 2008Q4

REPORT INFORMATION
  Report Type: 
  Country: None (occurrence: None)
  Receive Date: 20081217
  Receipt Date: 20081205
  Transmission Date: 20090506
  Serious: Yes (Hospitalization, Disabling)
  Sender: FDA-Public Use
  Company Number: IT-CELGENEUS-083-21880-08120418

PATIENT
  Sex: Male
  Weight: 62 kg

DRUGS (11)
  1. REVLIMID [Suspect]
     Indication: DIFFUSE LARGE B-CELL LYMPHOMA
     Route: 048
     Dates: start: 20081029
  2. REVLIMID [Suspect]
     Route: 048
     Dates: start: 20081119, end: 20081121
  3. REVLIMID [Suspect]
     Route: 048
     Dates: start: 20081122, end: 20081127
  4. RITUXIMAB [Suspect]
     Indication: DRUG USE FOR UNKNOWN INDICATION
     Route: 065
     Dates: start: 20081029
  5. RITUXIMAB [Suspect]
     Dates: start: 20081119
  6. ENDOXAN [Suspect]
     Indication: DRUG USE FOR UNKNOWN INDICATION
     Route: 065
     Dates: start: 20081029
  7. ENDOXAN [Suspect]
     Dates: start: 20081119
  8. ZEFFIX [Suspect]
     Indication: DRUG USE FOR UNKNOWN INDICATION
     Route: 065
     Dates: start: 20081029
  9. PURSENNID [Concomitant]
     Indication: DRUG USE FOR UNKNOWN INDICATION
     Route: 065
  10. NEULASTA [Concomitant]
     Indication: DRUG USE FOR UNKNOWN INDICATION
     Dosage: 1 VIAL
     Route: 065
  11. BACTRIM [Concomitant]
     Indication: DRUG USE FOR UNKNOWN INDICATION
     Route: 048
     Dates: start: 20081029

REACTIONS (3)
  - DYSAESTHESIA [None]
  - ERYTHEMA [None]
  - OEDEMA PERIPHERAL [None]
